FAERS Safety Report 7159875-8 (Version None)
Quarter: 2010Q4

REPORT INFORMATION
  Report Type: 
  Country: None (occurrence: None)
  Receive Date: 20101214
  Receipt Date: 20101209
  Transmission Date: 20110411
  Serious: Yes (Hospitalization)
  Sender: FDA-Public Use
  Company Number: ES-ROCHE-728064

PATIENT
  Sex: Female
  Weight: 49 kg

DRUGS (6)
  1. BEVACIZUMAB [Suspect]
     Indication: BREAST CANCER
     Dosage: DOSE: 765 MG.
     Route: 042
     Dates: start: 20091228, end: 20100824
  2. BEVACIZUMAB [Suspect]
     Route: 042
     Dates: end: 20100915
  3. BEVACIZUMAB [Suspect]
     Route: 042
     Dates: start: 20100921
  4. LETROZOLE [Suspect]
     Indication: BREAST CANCER
     Dosage: LAST DOSE PRIOR TO SAE: 14 SEPTEMBER 2010.
     Route: 048
     Dates: start: 20091222
  5. FENTANYL [Concomitant]
     Dates: start: 20100525
  6. PARACETAMOL [Concomitant]
     Dates: start: 20100413

REACTIONS (1)
  - RENAL FAILURE [None]
